FAERS Safety Report 6262672-9 (Version None)
Quarter: 2009Q3

REPORT INFORMATION
  Report Type: 
  Country: None (occurrence: None)
  Receive Date: 20090709
  Receipt Date: 20090629
  Transmission Date: 20100115
  Serious: Yes (Other)
  Sender: FDA-Public Use
  Company Number: US-SANOFI-SYNTHELABO-A03200702396

PATIENT
  Age: 58 Year
  Sex: Female

DRUGS (2)
  1. AMBIEN [Suspect]
     Indication: INSOMNIA
     Dosage: TOOK 20 MG BUT SHORTLY LATER GOT UP AND TOOK ANOTHER 10 MG
     Route: 048
  2. THYROID MEDICATION NOS [Concomitant]
     Indication: DRUG USE FOR UNKNOWN INDICATION
     Dosage: UNK
     Route: 065

REACTIONS (7)
  - AMNESIA [None]
  - HALLUCINATION, VISUAL [None]
  - IMPAIRED DRIVING ABILITY [None]
  - OVERDOSE [None]
  - PIRIFORMIS SYNDROME [None]
  - SLEEP TALKING [None]
  - SOMNAMBULISM [None]
